FAERS Safety Report 6304936-6 (Version None)
Quarter: 2009Q3

REPORT INFORMATION
  Report Type: 
  Country: None (occurrence: None)
  Receive Date: 20090807
  Receipt Date: 20090725
  Transmission Date: 20100115
  Serious: Yes (Hospitalization)
  Sender: FDA-Public Use
  Company Number: SPI200900226

PATIENT
  Age: 71 Year
  Sex: Female
  Weight: 90.7 kg

DRUGS (7)
  1. AMITIZA [Suspect]
     Indication: CONSTIPATION
  2. BENADRYL [Suspect]
     Indication: HYPERSENSITIVITY
     Dosage: 50 MG, EVERY FIVE HOURS FOR 48 HOURS, INTRAVENOUS
     Route: 042
     Dates: start: 20090306, end: 20090308
  3. LAMICTAL [Concomitant]
  4. CARTIA XT /00489701/ (DILTIAZEM) [Concomitant]
  5. SYNTHROID [Concomitant]
  6. ASPIRIN [Concomitant]
  7. LIBRIUM /00011501 (CHLORDIAZEPOXIDE) [Concomitant]

REACTIONS (9)
  - AMNESIA [None]
  - DIVERTICULITIS [None]
  - HYPERSENSITIVITY [None]
  - MENTAL STATUS CHANGES [None]
  - OVERDOSE [None]
  - PAIN [None]
  - PSYCHOTIC DISORDER [None]
  - SENSORY DISTURBANCE [None]
  - SWELLING [None]
